FAERS Safety Report 8130604-4 (Version None)
Quarter: 2012Q1

REPORT INFORMATION
  Report Type: 
  Country: None (occurrence: None)
  Receive Date: 20120213
  Receipt Date: 20120203
  Transmission Date: 20120608
  Serious: Yes (Hospitalization)
  Sender: FDA-Public Use
  Company Number: US-AMGEN-USASP2012007560

PATIENT
  Sex: Female

DRUGS (1)
  1. ENBREL [Suspect]
     Indication: ANKYLOSING SPONDYLITIS
     Dosage: 50 MG, QWK

REACTIONS (15)
  - WEIGHT DECREASED [None]
  - GAIT DISTURBANCE [None]
  - DRUG INEFFECTIVE [None]
  - TRANSFUSION [None]
  - HYPOAESTHESIA [None]
  - HAEMOGLOBIN DECREASED [None]
  - HYPOTONIA [None]
  - PARAESTHESIA [None]
  - DIZZINESS POSTURAL [None]
  - LIGAMENT DISORDER [None]
  - MUSCULAR WEAKNESS [None]
  - FOOT DEFORMITY [None]
  - PERONEAL NERVE PALSY [None]
  - PAIN [None]
  - ROAD TRAFFIC ACCIDENT [None]
